FAERS Safety Report 9780133 (Version 1)
Quarter: 2013Q4

REPORT INFORMATION
  Report Type: Spontaneous
  Country: US (occurrence: US)
  Receive Date: 20131223
  Receipt Date: 20131223
  Transmission Date: 20140711
  Serious: Yes (Other)
  Sender: FDA-Public Use
  Company Number: US-TAKEDA-2013TUS003328

PATIENT
  Sex: 0

DRUGS (5)
  1. ULORIC [Suspect]
     Indication: GOUT
     Dosage: 40 MG, QD
     Route: 048
     Dates: start: 20131218, end: 20131218
  2. CELLCEPT                           /01275102/ [Concomitant]
     Indication: IMMUNOSUPPRESSION
     Dosage: UNK
  3. PROGRAF [Concomitant]
     Indication: IMMUNOSUPPRESSION
     Dosage: UNK
  4. FUROSEMIDE [Concomitant]
     Indication: POLYURIA
     Dosage: UNK
     Route: 048
  5. SYNTHROID [Concomitant]
     Indication: HYPOTHYROIDISM
     Dosage: UNK
     Route: 048

REACTIONS (5)
  - Cardiac flutter [Recovering/Resolving]
  - Blood potassium decreased [Not Recovered/Not Resolved]
  - Night sweats [Recovered/Resolved]
  - Alanine aminotransferase increased [Not Recovered/Not Resolved]
  - Palpitations [Recovering/Resolving]
